FAERS Safety Report 9581040 (Version 2)
Quarter: 2013Q4

REPORT INFORMATION
  Report Type: Spontaneous
  Country: JP (occurrence: JP)
  Receive Date: 20131002
  Receipt Date: 20131002
  Transmission Date: 20140711
  Serious: Yes (Life-Threatening)
  Sender: FDA-Public Use
  Company Number: JP-CELGENEUS-087-21660-13093720

PATIENT
  Age: 68 Year
  Sex: Male
  Weight: 46 kg

DRUGS (10)
  1. ABRAXANE [Suspect]
     Indication: NON-SMALL CELL LUNG CANCER METASTATIC
     Dosage: 143.3 MILLIGRAM
     Route: 041
     Dates: start: 20130801, end: 20130903
  2. CARBOPLATIN [Suspect]
     Indication: NON-SMALL CELL LUNG CANCER METASTATIC
     Dosage: 450 MILLIGRAM
     Route: 041
     Dates: start: 20130606, end: 20130827
  3. OXINORM [Suspect]
     Indication: CANCER PAIN
     Dosage: 20 MILLIGRAM
     Route: 048
     Dates: start: 20130517
  4. OXYCONTIN [Interacting]
     Indication: CANCER PAIN
     Dosage: 80 MILLIGRAM
     Route: 048
     Dates: start: 20130517
  5. ELSPRI CA [Concomitant]
     Indication: HYPOCALCAEMIA
     Dosage: 1800 MILLIGRAM
     Route: 048
     Dates: start: 20130612
  6. ALFAROL [Interacting]
     Indication: HYPOCALCAEMIA
     Dosage: .5 MICROGRAM
     Route: 048
     Dates: start: 20130612
  7. RANMARK [Interacting]
     Indication: NON-SMALL CELL LUNG CANCER METASTATIC
     Dosage: 120 MILLIGRAM
     Route: 058
     Dates: start: 20130612, end: 20130816
  8. PARIET [Interacting]
     Indication: GASTRIC ULCER
     Dosage: 20 MILLIGRAM
     Route: 048
  9. MAINTATE [Interacting]
     Indication: PRODUCT USED FOR UNKNOWN INDICATION
     Dosage: .3125 MILLIGRAM
     Route: 065
     Dates: start: 20130912
  10. PLETAAL [Interacting]
     Indication: PRODUCT USED FOR UNKNOWN INDICATION
     Dosage: 200 MILLIGRAM
     Route: 065
     Dates: start: 20130916

REACTIONS (1)
  - Myocardial infarction [Recovering/Resolving]
